FAERS Safety Report 25124929 (Version 1)
Quarter: 2025Q1

REPORT INFORMATION
  Report Type: Spontaneous
  Country: US (occurrence: None)
  Receive Date: 20250325
  Receipt Date: 20250325
  Transmission Date: 20250408
  Serious: Yes (Hospitalization)
  Sender: FDA-CTU
  Company Number: None

PATIENT
  Age: 70 Year
  Sex: Female

DRUGS (1)
  1. TAVNEOS [Suspect]
     Active Substance: AVACOPAN
     Dosage: 30 MG TWICE A DAY ORAL
     Route: 048

REACTIONS (7)
  - Somnolence [None]
  - Illness [None]
  - Asthenia [None]
  - Incoherent [None]
  - Blood sodium decreased [None]
  - Blood phosphorus decreased [None]
  - Blood potassium decreased [None]

NARRATIVE: CASE EVENT DATE: 20250325
